FAERS Safety Report 25539355 (Version 1)
Quarter: 2025Q3

REPORT INFORMATION
  Report Type: Spontaneous
  Country: US (occurrence: None)
  Receive Date: 20250709
  Receipt Date: 20250709
  Transmission Date: 20251020
  Serious: Yes (Other)
  Sender: FDA-CTU
  Company Number: None

PATIENT
  Sex: Female

DRUGS (8)
  1. XOLAIR [Suspect]
     Active Substance: OMALIZUMAB
     Indication: Asthma
     Dosage: OTHER QUANTITY : 2 SYRINGES ;?FREQUENCY : EVERY OTHER WEEK;?
     Route: 058
     Dates: start: 20250514
  2. BENZONATATE [Concomitant]
     Active Substance: BENZONATATE
  3. FASENRA [Concomitant]
     Active Substance: BENRALIZUMAB
  4. GUAIFENESIN SOL CODEINE [Concomitant]
  5. LIDOCAINE SOL [Concomitant]
  6. LYRICA [Concomitant]
     Active Substance: PREGABALIN
  7. MONTELUKAST SODIUM [Concomitant]
     Active Substance: MONTELUKAST SODIUM
  8. PREDNISONE [Suspect]
     Active Substance: PREDNISONE

REACTIONS (2)
  - Asthma [None]
  - Quality of life decreased [None]
